FAERS Safety Report 17447203 (Version 2)
Quarter: 2020Q1

REPORT INFORMATION
  Report Type: Spontaneous
  Country: US (occurrence: US)
  Receive Date: 20200221
  Receipt Date: 20200225
  Transmission Date: 20200409
  Serious: No
  Sender: FDA-Public Use
  Company Number: US-PFIZER INC-2020078422

PATIENT
  Age: 53 Year
  Sex: Male
  Weight: 70.31 kg

DRUGS (2)
  1. EMBEDA [Suspect]
     Active Substance: MORPHINE SULFATE\NALTREXONE HYDROCHLORIDE
     Dosage: 50 MG, 2X/DAY
     Dates: start: 202002
  2. EMBEDA [Suspect]
     Active Substance: MORPHINE SULFATE\NALTREXONE HYDROCHLORIDE
     Indication: PAIN
     Dosage: 100 MG, 1X/DAY (I WAS TAKING 100MG QD)
     Dates: end: 201902

REACTIONS (2)
  - Therapeutic product effect decreased [Unknown]
  - Drug tolerance [Unknown]
